FAERS Safety Report 8802819 (Version 1)
Quarter: 2012Q4

REPORT INFORMATION
  Report Type: Report from Study
  Country: JP (occurrence: JP)
  Receive Date: 20120921
  Receipt Date: 20120921
  Transmission Date: 20130627
  Serious: Yes (Other)
  Sender: FDA-Public Use
  Company Number: JP-009507513-1209JPN007029

PATIENT
  Age: 55 Year
  Sex: Male
  Weight: 83 kg

DRUGS (16)
  1. PEGINTRON [Suspect]
     Indication: HEPATITIS C
     Dosage: 1.2 Microgram per kilogram, qw
     Route: 058
     Dates: start: 20120518
  2. PEGINTRON [Suspect]
     Dosage: 1.5 Microgram per kilogram, qw
     Route: 058
     Dates: end: 20120720
  3. REBETOL [Suspect]
     Indication: HEPATITIS C
     Dosage: 800 mg, qd
     Route: 048
     Dates: start: 20120518, end: 20120524
  4. REBETOL [Suspect]
     Dosage: 1000mg, qd
     Route: 048
     Dates: start: 20120525, end: 20120531
  5. REBETOL [Suspect]
     Dosage: 600 mg, qd
     Route: 048
     Dates: start: 20120601, end: 20120607
  6. REBETOL [Suspect]
     Dosage: 400 mg, qd
     Route: 048
     Dates: start: 20120608, end: 20120621
  7. REBETOL [Suspect]
     Dosage: 200 mg, qd
     Route: 048
     Dates: start: 20120622, end: 20120726
  8. TELAVIC [Suspect]
     Indication: HEPATITIS C
     Dosage: 2250mg, qd
     Dates: start: 20120518, end: 20120726
  9. URSO [Concomitant]
     Indication: HEPATITIS C
     Dosage: 600 mg, qd,formulation:POR
     Route: 048
  10. EXCEGRAN [Concomitant]
     Indication: CEREBRAL HAEMORRHAGE
     Dosage: 200 mg, qd,formulation:POR
  11. DIOVAN [Concomitant]
     Indication: HYPERTENSION
     Dosage: 80 mg, qd, formulation:POR
     Route: 048
     Dates: end: 20120705
  12. AMLODIN OD [Concomitant]
     Indication: HYPERTENSION
     Dosage: 5 mg, qd, formulation:POR
     Route: 048
  13. ARTIST [Concomitant]
     Indication: HYPERTENSION
     Dosage: 10 mg, qd, formulation:POR
     Route: 048
  14. PURSENNID (SENNOSIDES) [Concomitant]
     Indication: CONSTIPATION
     Dosage: 1 tab/ day, a s needed.daily dose unknown
     Route: 048
  15. ALLEGRA [Concomitant]
     Dosage: 120 mg, qd, formulation:POR
     Route: 048
     Dates: start: 20120802, end: 20120816
  16. HYTHIOL [Concomitant]
     Dosage: 160 mg, qd, formulation:POR
     Route: 048
     Dates: start: 20120802, end: 20120816

REACTIONS (1)
  - Drug eruption [Recovering/Resolving]
